FAERS Safety Report 23250151 (Version 1)
Quarter: 2023Q4

REPORT INFORMATION
  Report Type: Spontaneous
  Country: JP (occurrence: JP)
  Receive Date: 20231201
  Receipt Date: 20231201
  Transmission Date: 20240109
  Serious: Yes (Hospitalization, Other)
  Sender: FDA-Public Use
  Company Number: JP-MSD-M2023-51106

PATIENT
  Age: 9 Decade
  Sex: Female
  Weight: 37 kg

DRUGS (4)
  1. KEYTRUDA [Suspect]
     Active Substance: PEMBROLIZUMAB
     Indication: Oropharyngeal cancer recurrent
     Route: 041
  2. CARBOPLATIN [Concomitant]
     Active Substance: CARBOPLATIN
     Indication: Oropharyngeal cancer recurrent
     Dosage: 4.0 AUC/Q3W
     Route: 065
  3. FLUOROURACIL [Concomitant]
     Active Substance: FLUOROURACIL
     Indication: Oropharyngeal cancer recurrent
     Dosage: 600 MG X 4 DAYS CONTINUOUS INTRAVENOUS INFUSION, Q3W
     Route: 041
  4. FLUOROURACIL [Concomitant]
     Active Substance: FLUOROURACIL
     Dosage: UNK
     Route: 041

REACTIONS (5)
  - Pneumonia pseudomonal [Not Recovered/Not Resolved]
  - Infusion site extravasation [Recovered/Resolved]
  - Cheilitis [Recovered/Resolved]
  - Stomatitis [Recovered/Resolved]
  - Nausea [Recovered/Resolved]
